FAERS Safety Report 6217462-X (Version None)
Quarter: 2009Q2

REPORT INFORMATION
  Report Type: 
  Country: None (occurrence: None)
  Receive Date: 20090608
  Receipt Date: 20081105
  Transmission Date: 20091009
  Serious: No
  Sender: FDA-Public Use
  Company Number: A0755190A

PATIENT
  Sex: Female

DRUGS (4)
  1. WELLBUTRIN XL [Suspect]
     Indication: DEPRESSION
     Dosage: 300MG PER DAY
     Route: 048
     Dates: start: 20081023
  2. SYNTHROID [Concomitant]
  3. FIORINAL [Concomitant]
     Dates: end: 20081101
  4. FIORICET [Concomitant]
     Dates: end: 20081101

REACTIONS (1)
  - DRUG INEFFECTIVE [None]
